FAERS Safety Report 6653214-4 (Version None)
Quarter: 2010Q1

REPORT INFORMATION
  Report Type: 
  Country: None (occurrence: None)
  Receive Date: 20100326
  Receipt Date: 20100316
  Transmission Date: 20100710
  Serious: Yes (Death)
  Sender: FDA-Public Use
  Company Number: US-ELI_LILLY_AND_COMPANY-US201003004579

PATIENT
  Sex: Male

DRUGS (5)
  1. SYMBYAX [Suspect]
     Indication: DEPRESSION
     Dosage: 1 D/F, UNK
     Dates: start: 20091130
  2. CYMBALTA [Suspect]
     Indication: DEPRESSION
  3. LORTAB [Concomitant]
     Indication: OSTEOARTHRITIS
     Dosage: 1 D/F, UNK
  4. NAPROXEN [Concomitant]
     Indication: OSTEOARTHRITIS
     Dosage: 500 MG, 2/D
  5. LIPITOR [Concomitant]
     Indication: HYPERLIPIDAEMIA
     Dosage: 20 MG, UNK
     Dates: start: 20081001

REACTIONS (3)
  - COMPLETED SUICIDE [None]
  - DEPRESSION [None]
  - DRUG INEFFECTIVE [None]
